FAERS Safety Report 18641918 (Version 1)
Quarter: 2020Q4

REPORT INFORMATION
  Report Type: Spontaneous
  Country: US (occurrence: US)
  Receive Date: 20201221
  Receipt Date: 20201221
  Transmission Date: 20210114
  Serious: Yes (Other)
  Sender: FDA-Public Use
  Company Number: US-GW PHARMA-202012USGW04381

PATIENT

DRUGS (2)
  1. EPIDIOLEX [Suspect]
     Active Substance: CANNABIDIOL
     Indication: IDIOPATHIC GENERALISED EPILEPSY
     Dosage: UNKNOWN DOSE
     Route: 048
     Dates: start: 20190207, end: 202011
  2. EPIDIOLEX [Suspect]
     Active Substance: CANNABIDIOL
     Indication: EPILEPSY
     Dosage: 160 MILLIGRAM, BID
     Route: 048
     Dates: start: 202011

REACTIONS (7)
  - Drug ineffective [Unknown]
  - Anxiety [Unknown]
  - Product use in unapproved indication [Unknown]
  - Mood altered [Unknown]
  - Suicidal ideation [Unknown]
  - Decreased appetite [Unknown]
  - Crying [Unknown]

NARRATIVE: CASE EVENT DATE: 20201108
